FAERS Safety Report 14031177 (Version 2)
Quarter: 2017Q4

REPORT INFORMATION
  Report Type: Spontaneous
  Country: IT (occurrence: IT)
  Receive Date: 20171002
  Receipt Date: 20171003
  Transmission Date: 20180321
  Serious: Yes (Hospitalization)
  Sender: FDA-Public Use
  Company Number: IT-BIOVITRUM-2017IT0886

PATIENT
  Age: 13 Year
  Sex: Female
  Weight: 52 kg

DRUGS (4)
  1. NAPROXENE [Concomitant]
     Active Substance: NAPROXEN
     Indication: STILL^S DISEASE
  2. LANSOX [Concomitant]
     Active Substance: LANSOPRAZOLE
     Route: 048
  3. KINERET [Suspect]
     Active Substance: ANAKINRA
     Indication: STILL^S DISEASE
     Dates: start: 20170801, end: 20170816
  4. PREDNISONE. [Concomitant]
     Active Substance: PREDNISONE
     Indication: STILL^S DISEASE
     Route: 048

REACTIONS (6)
  - Hypotension [Unknown]
  - Vomiting [Unknown]
  - Erythema [Unknown]
  - Myalgia [Unknown]
  - Tachycardia [Unknown]
  - Hypersensitivity [Unknown]

NARRATIVE: CASE EVENT DATE: 20170914
